FAERS Safety Report 7752859-8 (Version None)
Quarter: 2011Q3

REPORT INFORMATION
  Report Type: 
  Country: None (occurrence: None)
  Receive Date: 20110915
  Receipt Date: 20100707
  Transmission Date: 20111222
  Serious: No
  Sender: FDA-Public Use
  Company Number: US-BAYER-201028991NA

PATIENT
  Sex: Female

DRUGS (2)
  1. MIRENA [Suspect]
     Indication: MENORRHAGIA
     Dosage: 20 ?G, CONT
     Route: 015
     Dates: start: 20100504, end: 20100625
  2. MIRENA [Suspect]
     Indication: UTERINE SPASM

REACTIONS (2)
  - MENORRHAGIA [None]
  - UTERINE SPASM [None]
